FAERS Safety Report 4906048-2 (Version None)
Quarter: 2006Q1

REPORT INFORMATION
  Report Type: 
  Country: None (occurrence: None)
  Receive Date: 20060207
  Receipt Date: 20060207
  Transmission Date: 20060701
  Serious: Yes (Other)
  Sender: FDA-Public Use
  Company Number: None

PATIENT

DRUGS (1)
  1. CREST WHITENING WITH TARTAR PROTECTION CREST CAVITY PROTECTION TSP LAB [Suspect]
     Dates: start: 20050101, end: 20060203

REACTIONS (2)
  - ORAL MUCOSAL EXFOLIATION [None]
  - PHARMACEUTICAL PRODUCT COMPLAINT [None]
